FAERS Safety Report 18565141 (Version 1)
Quarter: 2020Q4

REPORT INFORMATION
  Report Type: Spontaneous
  Country: US (occurrence: US)
  Receive Date: 20201201
  Receipt Date: 20201201
  Transmission Date: 20210114
  Serious: Yes (Hospitalization)
  Sender: FDA-Public Use
  Company Number: None

PATIENT
  Age: 84 Year
  Sex: Male
  Weight: 64.2 kg

DRUGS (1)
  1. BAMLANIVIMAB. [Suspect]
     Active Substance: BAMLANIVIMAB
     Indication: COVID-19
     Dosage: ?          OTHER FREQUENCY:ONCE;?
     Route: 042
     Dates: start: 20201129, end: 20201129

REACTIONS (8)
  - Troponin increased [None]
  - Oxygen saturation decreased [None]
  - Fibrin D dimer increased [None]
  - Hypoxia [None]
  - Tachypnoea [None]
  - Serum ferritin increased [None]
  - Blood creatine phosphokinase increased [None]
  - Blood lactate dehydrogenase increased [None]

NARRATIVE: CASE EVENT DATE: 20201129
